FAERS Safety Report 6542332-7 (Version None)
Quarter: 2010Q1

REPORT INFORMATION
  Report Type: 
  Country: None (occurrence: None)
  Receive Date: 20100119
  Receipt Date: 20100111
  Transmission Date: 20100710
  Serious: Yes (Other)
  Sender: FDA-Public Use
  Company Number: US-PFIZER INC-2010004266

PATIENT
  Sex: Female
  Weight: 58 kg

DRUGS (3)
  1. CHANTIX [Suspect]
     Indication: SMOKING CESSATION THERAPY
     Dosage: 0.5 MG, 1X/DAY
     Dates: start: 20100110
  2. PREMPHASE 14/14 [Concomitant]
  3. XANAX [Concomitant]

REACTIONS (14)
  - AGITATION [None]
  - ANXIETY [None]
  - DECREASED APPETITE [None]
  - EMOTIONAL DISORDER [None]
  - ERYTHEMA [None]
  - FACIAL PAIN [None]
  - FEELING ABNORMAL [None]
  - FORMICATION [None]
  - HEART RATE INCREASED [None]
  - SKIN CHAPPED [None]
  - TACHYPHRENIA [None]
  - THINKING ABNORMAL [None]
  - TOBACCO USER [None]
  - VIOLENCE-RELATED SYMPTOM [None]
